FAERS Safety Report 4543110-0 (Version None)
Quarter: 2004Q4

REPORT INFORMATION
  Report Type: 
  Country: None (occurrence: None)
  Receive Date: 20041229
  Receipt Date: 20041213
  Transmission Date: 20050328
  Serious: Yes (Hospitalization)
  Sender: FDA-Public Use
  Company Number: DSA_60461_2004

PATIENT
  Age: 40 Year
  Sex: Female

DRUGS (4)
  1. DIHYDROERGOTAMINE MESYLATE [Suspect]
     Indication: HEADACHE
     Dosage: 10 MG DAILY
  2. METHYSERGIDE [Suspect]
     Indication: HEADACHE
     Dosage: 3 TAB DAILY
  3. PROPRANOLOL [Concomitant]
  4. OESTROGEN-PROGESTERONE CONTRACEPTIVE [Concomitant]

REACTIONS (21)
  - CARDIOVASCULAR DISORDER [None]
  - DIFFICULTY IN WALKING [None]
  - DRUG INEFFECTIVE [None]
  - ERGOT POISONING [None]
  - EXTENSOR PLANTAR RESPONSE [None]
  - FATIGUE [None]
  - GAIT DISTURBANCE [None]
  - HYPOAESTHESIA [None]
  - INTERMITTENT CLAUDICATION [None]
  - ISCHAEMIC NEUROPATHY [None]
  - MUSCULAR WEAKNESS [None]
  - NEUROMUSCULAR BLOCKADE [None]
  - PAIN [None]
  - PAIN IN EXTREMITY [None]
  - PALLOR [None]
  - PARAESTHESIA [None]
  - PEDAL PULSE ABSENT [None]
  - PERIPHERAL COLDNESS [None]
  - POPLITEAL PULSE DECREASED [None]
  - RADIAL PULSE DECREASED [None]
  - SENSATION OF HEAVINESS [None]
